FAERS Safety Report 17819112 (Version 2)
Quarter: 2020Q2

REPORT INFORMATION
  Report Type: Report from Study
  Country: GB (occurrence: GB)
  Receive Date: 20200523
  Receipt Date: 20200618
  Transmission Date: 20200714
  Serious: Yes (Other)
  Sender: FDA-Public Use
  Company Number: NVSC2020GB139961

PATIENT
  Sex: Female

DRUGS (1)
  1. COSENTYX [Suspect]
     Active Substance: SECUKINUMAB
     Indication: ANKYLOSING SPONDYLITIS
     Dosage: 150 MG, QMO
     Route: 065

REACTIONS (7)
  - Arthropathy [Unknown]
  - Musculoskeletal disorder [Unknown]
  - Cough [Recovering/Resolving]
  - Mobility decreased [Unknown]
  - Product dose omission [Unknown]
  - Dyspnoea [Recovering/Resolving]
  - COVID-19 [Recovering/Resolving]
